FAERS Safety Report 7012826-9 (Version None)
Quarter: 2010Q3

REPORT INFORMATION
  Report Type: 
  Country: None (occurrence: None)
  Receive Date: 20100924
  Receipt Date: 20100915
  Transmission Date: 20110219
  Serious: Yes (Hospitalization)
  Sender: FDA-Public Use
  Company Number: B0675133A

PATIENT
  Sex: Male

DRUGS (2)
  1. KIVEXA [Suspect]
     Indication: HIV INFECTION
     Dosage: 1TAB PER DAY
     Route: 048
     Dates: start: 20100901, end: 20100901
  2. REYATAZ [Concomitant]
     Indication: HIV INFECTION
     Route: 048

REACTIONS (3)
  - DRY MOUTH [None]
  - HYPERGLYCAEMIA [None]
  - MALAISE [None]
